FAERS Safety Report 25885676 (Version 1)
Quarter: 2025Q4

REPORT INFORMATION
  Report Type: Spontaneous
  Country: US (occurrence: US)
  Receive Date: 20251006
  Receipt Date: 20251006
  Transmission Date: 20260117
  Serious: Yes (Other)
  Sender: RANBAXY
  Company Number: US-SUN PHARMACEUTICAL INDUSTRIES LTD-2025R1-519651

PATIENT
  Age: 63 Year
  Weight: 90.703 kg

DRUGS (3)
  1. CEQUA [Suspect]
     Active Substance: CYCLOSPORINE
     Indication: Dry eye
     Dosage: 1 DROP, BID
     Route: 047
     Dates: start: 20250710, end: 20250711
  2. SYNTHROID [Concomitant]
     Active Substance: LEVOTHYROXINE SODIUM
     Indication: Product used for unknown indication
     Dosage: 0.08 UNK, QD
     Route: 065
  3. CRESTOR [Concomitant]
     Active Substance: ROSUVASTATIN CALCIUM
     Indication: Product used for unknown indication
     Dosage: 5 GRAM
     Route: 065

REACTIONS (9)
  - Urinary tract infection [Unknown]
  - Therapy cessation [Unknown]
  - Ocular discomfort [Unknown]
  - Eye pain [Unknown]
  - Burning sensation [Unknown]
  - Vision blurred [Unknown]
  - Nasal discomfort [Unknown]
  - Photosensitivity reaction [Unknown]
  - Epistaxis [Unknown]

NARRATIVE: CASE EVENT DATE: 20250710
